FAERS Safety Report 7240560-9 (Version None)
Quarter: 2011Q1

REPORT INFORMATION
  Report Type: 
  Country: None (occurrence: None)
  Receive Date: 20110124
  Receipt Date: 20110120
  Transmission Date: 20110831
  Serious: No
  Sender: FDA-Public Use
  Company Number: US-PFIZER INC-US-WYE-H17303810

PATIENT
  Sex: Female

DRUGS (3)
  1. SEROQUEL [Concomitant]
  2. GEODON [Suspect]
     Route: 065
  3. EFFEXOR [Suspect]
     Dosage: UNK
     Route: 065
     Dates: start: 20040101, end: 20100831

REACTIONS (3)
  - MUSCLE TWITCHING [None]
  - MYALGIA [None]
  - DRUG WITHDRAWAL SYNDROME [None]
